FAERS Safety Report 21025348 (Version 2)
Quarter: 2022Q3

REPORT INFORMATION
  Report Type: Report from Study
  Country: US (occurrence: US)
  Receive Date: 20220630
  Receipt Date: 20220712
  Transmission Date: 20221026
  Serious: Yes (Other)
  Sender: FDA-Public Use
  Company Number: US-BIOVITRUM-2022US04743

PATIENT
  Sex: Male

DRUGS (2)
  1. KINERET [Suspect]
     Active Substance: ANAKINRA
     Indication: Product used for unknown indication
     Dates: start: 20211124
  2. ASPIRIN [Suspect]
     Active Substance: ASPIRIN
     Dosage: DAILY

REACTIONS (5)
  - Myocardial infarction [Unknown]
  - General symptom [Unknown]
  - Renal function test abnormal [Unknown]
  - COVID-19 [Recovered/Resolved]
  - Product dose omission issue [Unknown]
